FAERS Safety Report 24588404 (Version 1)
Quarter: 2024Q4

REPORT INFORMATION
  Report Type: Spontaneous
  Country: PT (occurrence: PT)
  Receive Date: 20241107
  Receipt Date: 20241107
  Transmission Date: 20250114
  Serious: Yes (Other)
  Sender: ASTELLAS
  Company Number: PT-GILEAD-2024-0692570

PATIENT
  Age: 23 Year
  Sex: Male

DRUGS (5)
  1. AMPHOTERICIN B [Suspect]
     Active Substance: AMPHOTERICIN B
     Indication: Antifungal treatment
     Dosage: FOR 70 DAYS
     Route: 065
  2. ISAVUCONAZOLE [Concomitant]
     Active Substance: ISAVUCONAZOLE
     Indication: Product used for unknown indication
     Route: 065
  3. CASPOFUNGIN [Concomitant]
     Active Substance: CASPOFUNGIN
     Indication: Product used for unknown indication
     Route: 065
  4. OLOROFIM [Concomitant]
     Active Substance: OLOROFIM
     Indication: Product used for unknown indication
     Route: 065
  5. VANCOMYCIN [Concomitant]
     Active Substance: VANCOMYCIN
     Indication: Product used for unknown indication
     Route: 065

REACTIONS (4)
  - Renal tubular disorder [Unknown]
  - Acid-base balance disorder mixed [Recovering/Resolving]
  - Polyuria [Unknown]
  - Treatment failure [Not Recovered/Not Resolved]
